FAERS Safety Report 5318397-7 (Version None)
Quarter: 2007Q2

REPORT INFORMATION
  Report Type: 
  Country: None (occurrence: None)
  Receive Date: 20070501
  Receipt Date: 20070419
  Transmission Date: 20071010
  Serious: Yes (Other)
  Sender: FDA-Public Use
  Company Number: LTI2007A00105

PATIENT
  Sex: Male

DRUGS (2)
  1. ACTOS [Suspect]
     Indication: DIABETES MELLITUS NON-INSULIN-DEPENDENT
     Dosage: 1 DF (1 DF, 1 IN 1 D) ORAL
     Route: 048
  2. METFORMINE (METFORMIN) [Concomitant]

REACTIONS (3)
  - CONDITION AGGRAVATED [None]
  - DIABETES MELLITUS [None]
  - PANCREATIC CARCINOMA [None]
